FAERS Safety Report 17445973 (Version 2)
Quarter: 2020Q1

REPORT INFORMATION
  Report Type: Spontaneous
  Country: IT (occurrence: IT)
  Receive Date: 20200221
  Receipt Date: 20200306
  Transmission Date: 20200409
  Serious: Yes (Death, Other)
  Sender: FDA-Public Use
  Company Number: IT-PFIZER INC-2020079733

PATIENT
  Age: 57 Year
  Sex: Male

DRUGS (10)
  1. FOLINA [FOLIC ACID] [Concomitant]
     Active Substance: FOLIC ACID
     Dosage: 5 MG, CYCLIC (TUESDAY-THURSDAY-SAT)
  2. BACTRIM [Concomitant]
     Active Substance: SULFAMETHOXAZOLE\TRIMETHOPRIM
     Dosage: 1 DF, CYCLIC (MON-WED-FRI)
  3. DEURSIL [Concomitant]
     Active Substance: URSODIOL
     Dosage: 300 MG, 2X/DAY
  4. LYRICA [Concomitant]
     Active Substance: PREGABALIN
     Dosage: 75 MG, UNK
  5. FUROSEMIDE. [Concomitant]
     Active Substance: FUROSEMIDE
     Dosage: 25 MG, UNK
  6. INOTUZUMAB OZOGAMICIN [Suspect]
     Active Substance: INOTUZUMAB OZOGAMICIN
     Indication: ACUTE LYMPHOCYTIC LEUKAEMIA
     Dosage: 0.5 MG/MQ, CYCLIC (DAYS 1-8-15)
     Route: 042
     Dates: start: 20181026
  7. PANTOPRAZOLE [Concomitant]
     Active Substance: PANTOPRAZOLE
     Dosage: 20 MG, UNK
  8. CICLOSPORIN [Concomitant]
     Active Substance: CYCLOSPORINE
     Dosage: 100 MG, 2X/DAY
  9. MEDROL [Concomitant]
     Active Substance: METHYLPREDNISOLONE
     Dosage: 16 MG, UNK
  10. ACICLOVIR [Concomitant]
     Active Substance: ACYCLOVIR
     Dosage: 400 MG, 2X/DAY

REACTIONS (6)
  - Hepatotoxicity [Unknown]
  - Graft versus host disease [Fatal]
  - Urinary tract infection enterococcal [Unknown]
  - Venoocclusive liver disease [Unknown]
  - Neoplasm recurrence [Unknown]
  - Cachexia [Unknown]

NARRATIVE: CASE EVENT DATE: 20181123
